FAERS Safety Report 4400698-8 (Version None)
Quarter: 2004Q3

REPORT INFORMATION
  Report Type: 
  Country: None (occurrence: None)
  Receive Date: 20040714
  Receipt Date: 20030915
  Transmission Date: 20050211
  Serious: No
  Sender: FDA-Public Use
  Company Number: A01200304272

PATIENT
  Age: 76 Year
  Sex: Female

DRUGS (2)
  1. (CLOPIDOGREL) - TABLET - 75 MG [Suspect]
     Indication: CARDIAC DISORDER
     Dosage: ORAL
     Route: 048
  2. NOVALDEX - (TAMOXIFEN CITRATE) [Suspect]
     Indication: BREAST CANCER
     Dosage: 20 MG QD ORAL
     Route: 048
     Dates: start: 20021101

REACTIONS (2)
  - DRUG INTERACTION [None]
  - POST PROCEDURAL HAEMATOMA [None]
